FAERS Safety Report 13116054 (Version 3)
Quarter: 2018Q4

REPORT INFORMATION
  Report Type: Spontaneous
  Country: CA (occurrence: CA)
  Receive Date: 20170116
  Receipt Date: 20181120
  Transmission Date: 20190204
  Serious: Yes (Other)
  Sender: FDA-Public Use
  Company Number: CA-ROCHE-1877012

PATIENT
  Age: 82 Year
  Sex: Female

DRUGS (8)
  1. ACTEMRA [Suspect]
     Active Substance: TOCILIZUMAB
     Indication: PRODUCT USED FOR UNKNOWN INDICATION
     Route: 042
     Dates: start: 201104, end: 201505
  2. DILAUDID [Concomitant]
     Active Substance: HYDROMORPHONE HYDROCHLORIDE
  3. MORPHINE [Concomitant]
     Active Substance: MORPHINE
  4. ENBREL [Suspect]
     Active Substance: ETANERCEPT
     Indication: RHEUMATOID ARTHRITIS
     Dosage: QWK
     Route: 058
     Dates: start: 200504, end: 200711
  5. METHOTREXATE SODIUM. [Suspect]
     Active Substance: METHOTREXATE SODIUM
     Indication: RHEUMATOID ARTHRITIS
     Route: 065
  6. METHOTREXATE. [Suspect]
     Active Substance: METHOTREXATE
     Indication: RHEUMATOID ARTHRITIS
     Route: 065
  7. ORENCIA [Suspect]
     Active Substance: ABATACEPT
     Indication: PRODUCT USED FOR UNKNOWN INDICATION
     Route: 042
     Dates: start: 200711, end: 201004
  8. XELJANZ [Concomitant]
     Active Substance: TOFACITINIB CITRATE
     Route: 065
     Dates: start: 20160609

REACTIONS (19)
  - Mobility decreased [Unknown]
  - Drug ineffective [Unknown]
  - Rheumatoid arthritis [Unknown]
  - Gait disturbance [Unknown]
  - Synovitis [Unknown]
  - Burning sensation [Unknown]
  - Loss of personal independence in daily activities [Unknown]
  - Infection [Unknown]
  - Arthritis [Unknown]
  - Drug effect incomplete [Unknown]
  - Lung disorder [Unknown]
  - Impaired healing [Unknown]
  - Pain [Unknown]
  - Drug effect decreased [Unknown]
  - Headache [Unknown]
  - Toe amputation [Unknown]
  - Drug hypersensitivity [Unknown]
  - Pneumonitis [Unknown]
  - Hand deformity [Unknown]

NARRATIVE: CASE EVENT DATE: 20151119
